FAERS Safety Report 18313811 (Version 2)
Quarter: 2020Q4

REPORT INFORMATION
  Report Type: Spontaneous
  Country: CN (occurrence: CN)
  Receive Date: 20200925
  Receipt Date: 20201006
  Transmission Date: 20210113
  Serious: Yes (Death)
  Sender: FDA-Public Use
  Company Number: CN-BAYER-2020-204959

PATIENT
  Age: 73 Year
  Sex: Male

DRUGS (1)
  1. AVELOX [Suspect]
     Active Substance: MOXIFLOXACIN HYDROCHLORIDE
     Indication: PNEUMONIA BACTERIAL
     Dosage: 400 MG
     Dates: start: 20200917, end: 20200917

REACTIONS (9)
  - Hypertension [Fatal]
  - Suffocation feeling [Fatal]
  - Cerebrovascular disorder [Fatal]
  - Anaphylactic shock [Fatal]
  - Respiratory failure [Fatal]
  - Lactic acidosis [Fatal]
  - Pulmonary embolism [Fatal]
  - Chest discomfort [Fatal]
  - Cardiovascular disorder [Fatal]

NARRATIVE: CASE EVENT DATE: 20200917
